FAERS Safety Report 20903691 (Version 1)
Quarter: 2022Q2

REPORT INFORMATION
  Report Type: Report from Study
  Country: US (occurrence: US)
  Receive Date: 20220602
  Receipt Date: 20220602
  Transmission Date: 20220721
  Serious: Yes (Other)
  Sender: FDA-Public Use
  Company Number: US-BAXALTA-2016BLT003366

PATIENT
  Age: 41 Year
  Sex: Female

DRUGS (1)
  1. HUMAN IMMUNOGLOBULIN G [Suspect]
     Active Substance: HUMAN IMMUNOGLOBULIN G
     Indication: Primary immunodeficiency syndrome
     Dosage: 15 GRAM, 1/WEEK
     Route: 058
     Dates: start: 2014

REACTIONS (5)
  - Pleurisy [Unknown]
  - Therapy interrupted [Unknown]
  - Blood immunoglobulin G decreased [Unknown]
  - Feeling abnormal [Unknown]
  - Insurance issue [Unknown]

NARRATIVE: CASE EVENT DATE: 20150801
